FAERS Safety Report 12660010 (Version 9)
Quarter: 2017Q3

REPORT INFORMATION
  Report Type: Spontaneous
  Country: HK (occurrence: HK)
  Receive Date: 20160817
  Receipt Date: 20170904
  Transmission Date: 20171127
  Serious: Yes (Death, Life-Threatening, Hospitalization, Other)
  Sender: FDA-Public Use
  Company Number: HK-PFIZER INC-2016384197

PATIENT
  Age: 26 Year
  Sex: Male

DRUGS (3)
  1. CISPLATIN. [Suspect]
     Active Substance: CISPLATIN
     Indication: PINEAL GERMINOMA
     Dosage: 20 MG, CYCLIC (DAY 1-5 ON A 3-WEEK CYCLE)
  2. BLEOMYCIN SULFATE [Suspect]
     Active Substance: BLEOMYCIN SULFATE
     Indication: PINEAL GERMINOMA
     Dosage: 30 MG, CYCLIC (ON DAY 2, 6, 16 ON 3-WEEK CYCLE)
  3. ETOPOSIDE. [Suspect]
     Active Substance: ETOPOSIDE
     Indication: PINEAL GERMINOMA
     Dosage: 100 MG/M2, CYCLIC (DAY 1-5 ON A 3-WEEK CYCLE)

REACTIONS (2)
  - Pneumocystis jirovecii pneumonia [Fatal]
  - Bone marrow failure [Unknown]

NARRATIVE: CASE EVENT DATE: 20131226
